FAERS Safety Report 9967928 (Version 1)
Quarter: 2014Q1

REPORT INFORMATION
  Report Type: Report from Study
  Country: US (occurrence: US)
  Receive Date: 20140306
  Receipt Date: 20140306
  Transmission Date: 20141002
  Serious: No
  Sender: FDA-Public Use
  Company Number: US-ABBVIE-13P-163-1139888-00

PATIENT
  Age: 37 Year
  Sex: Male

DRUGS (3)
  1. HUMIRA [Suspect]
     Indication: PSORIASIS
     Dosage: ON MONDAY
     Route: 058
     Dates: start: 20130513
  2. ZESTRIL [Concomitant]
     Indication: HYPERTENSION
     Dosage: 50 MG DAILY
     Route: 048
  3. ADVIL [Concomitant]
     Indication: MYALGIA
     Route: 048

REACTIONS (1)
  - Psoriasis [Not Recovered/Not Resolved]
